FAERS Safety Report 7982175-0 (Version None)
Quarter: 2011Q4

REPORT INFORMATION
  Report Type: 
  Country: None (occurrence: None)
  Receive Date: 20111214
  Receipt Date: 20111214
  Transmission Date: 20120403
  Serious: No
  Sender: FDA-Public Use
  Company Number: None

PATIENT
  Age: 66 Year
  Sex: Male
  Weight: 74.1 kg

DRUGS (2)
  1. GENTAMICIN [Suspect]
     Indication: ENDOCARDITIS
     Dosage: 80 MG PRN IV
     Route: 042
     Dates: start: 20111126, end: 20111130
  2. VANCOMYCIN HYCHLORIDE [Suspect]
     Indication: OSTEOMYELITIS
     Dosage: 1000 MG PRN IV
     Route: 042
     Dates: start: 20111123, end: 20111130

REACTIONS (1)
  - RENAL FAILURE ACUTE [None]
